FAERS Safety Report 23955262 (Version 1)
Quarter: 2024Q2

REPORT INFORMATION
  Report Type: Spontaneous
  Country: US (occurrence: US)
  Receive Date: 20240610
  Receipt Date: 20240610
  Transmission Date: 20240716
  Serious: Yes (Hospitalization)
  Sender: FDA-Public Use
  Company Number: US-BIOVITRUM-2024-US-008319

PATIENT
  Age: 82 Year
  Sex: Male

DRUGS (1)
  1. VONJO [Suspect]
     Active Substance: PACRITINIB
     Indication: Extranodal marginal zone B-cell lymphoma (MALT type)
     Dosage: TWICE DAILY
     Route: 048

REACTIONS (2)
  - Infection [Unknown]
  - Off label use [Recovered/Resolved]
